FAERS Safety Report 8474844-3 (Version None)
Quarter: 2012Q2

REPORT INFORMATION
  Report Type: 
  Country: None (occurrence: None)
  Receive Date: 20120628
  Receipt Date: 20120619
  Transmission Date: 20120825
  Serious: Yes (Life-Threatening, Hospitalization, Disabling, Other)
  Sender: FDA-Public Use
  Company Number: US-BRISTOL-MYERS SQUIBB COMPANY-16696676

PATIENT
  Age: 34 Year
  Sex: Female
  Weight: 88 kg

DRUGS (8)
  1. PLAVIX [Concomitant]
     Indication: FACTOR V DEFICIENCY
  2. PHENERGAN HCL [Concomitant]
     Indication: NAUSEA
  3. ZANTAC [Concomitant]
     Indication: ULCER
  4. PROTONIX [Suspect]
     Indication: ULCER
     Dates: start: 20110101
  5. HYDROCODONE BITARTRATE [Concomitant]
     Indication: MIGRAINE
  6. ASPIRIN [Concomitant]
     Indication: FACTOR V DEFICIENCY
  7. TOPAMAX [Concomitant]
     Indication: MIGRAINE
  8. COUMADIN [Suspect]
     Indication: FACTOR V DEFICIENCY

REACTIONS (5)
  - MYOCARDIAL INFARCTION [None]
  - THROMBOSIS [None]
  - INTERNATIONAL NORMALISED RATIO ABNORMAL [None]
  - PROCEDURAL HAEMORRHAGE [None]
  - DECREASED ACTIVITY [None]
